FAERS Safety Report 9730042 (Version 1)
Quarter: 2013Q4

REPORT INFORMATION
  Report Type: Spontaneous
  Country: US (occurrence: US)
  Receive Date: 20131204
  Receipt Date: 20131204
  Transmission Date: 20140711
  Serious: Yes (Other)
  Sender: FDA-Public Use
  Company Number: US-FRI-1000051894

PATIENT
  Age: 75 Year
  Sex: Male

DRUGS (1)
  1. TUDORZA PRESSAIR [Suspect]

REACTIONS (1)
  - Stevens-Johnson syndrome [Unknown]
